FAERS Safety Report 17193076 (Version 2)
Quarter: 2019Q4

REPORT INFORMATION
  Report Type: Report from Study
  Country: IE (occurrence: IE)
  Receive Date: 20191223
  Receipt Date: 20191230
  Transmission Date: 20200122
  Serious: Yes (Hospitalization)
  Sender: FDA-Public Use
  Company Number: IE-ASTRAZENECA-2019SF86303

PATIENT
  Age: 2 Year
  Sex: Male

DRUGS (13)
  1. SYNAGIS [Suspect]
     Active Substance: PALIVIZUMAB
     Indication: HEREDITARY DISORDER
     Dosage: SEASON 1
     Route: 030
     Dates: start: 20191113, end: 20191113
  2. SYNAGIS [Suspect]
     Active Substance: PALIVIZUMAB
     Indication: TRISOMY 9
     Dosage: SEASON 1
     Route: 030
     Dates: start: 20191223
  3. SYNAGIS [Suspect]
     Active Substance: PALIVIZUMAB
     Indication: TRISOMY 9
     Dosage: SEASON 1
     Route: 030
     Dates: start: 20191113, end: 20191113
  4. SYNAGIS [Suspect]
     Active Substance: PALIVIZUMAB
     Indication: DEVELOPMENTAL DELAY
     Dosage: SEASON 1
     Route: 030
     Dates: start: 20191113, end: 20191113
  5. LOSEC [Concomitant]
     Active Substance: OMEPRAZOLE
     Indication: PRODUCT USED FOR UNKNOWN INDICATION
     Route: 050
  6. SYNAGIS [Suspect]
     Active Substance: PALIVIZUMAB
     Indication: DEVELOPMENTAL DELAY
     Dosage: SEASON 1
     Route: 030
     Dates: start: 20191223
  7. KEPPRA [Concomitant]
     Active Substance: LEVETIRACETAM
     Indication: PRODUCT USED FOR UNKNOWN INDICATION
     Route: 050
  8. MOVICOL [Concomitant]
     Active Substance: POLYETHYLENE GLYCOL 3350\POTASSIUM CHLORIDE\SODIUM BICARBONATE\SODIUM CHLORIDE
     Indication: PRODUCT USED FOR UNKNOWN INDICATION
     Route: 050
  9. GABAPENTIN. [Concomitant]
     Active Substance: GABAPENTIN
     Indication: PRODUCT USED FOR UNKNOWN INDICATION
     Route: 050
  10. CHLORHYDRATE [Concomitant]
     Indication: PRODUCT USED FOR UNKNOWN INDICATION
     Route: 050
  11. GLYCOPYRRONIUM [Concomitant]
     Active Substance: GLYCOPYRRONIUM
     Indication: PRODUCT USED FOR UNKNOWN INDICATION
     Route: 050
  12. SYNAGIS [Suspect]
     Active Substance: PALIVIZUMAB
     Indication: HEREDITARY DISORDER
     Dosage: SEASON 1
     Route: 030
     Dates: start: 20191223
  13. MELATONIN [Concomitant]
     Active Substance: MELATONIN
     Indication: PRODUCT USED FOR UNKNOWN INDICATION
     Route: 050

REACTIONS (3)
  - Influenza [Recovering/Resolving]
  - Product use in unapproved indication [Unknown]
  - Bronchiolitis [Recovered/Resolved]

NARRATIVE: CASE EVENT DATE: 2019
